FAERS Safety Report 5531873-7 (Version None)
Quarter: 2007Q4

REPORT INFORMATION
  Report Type: 
  Country: None (occurrence: None)
  Receive Date: 20071203
  Receipt Date: 20071122
  Transmission Date: 20080405
  Serious: Yes (Life-Threatening)
  Sender: FDA-Public Use
  Company Number: GB-ROCHE-533330

PATIENT
  Age: 16 Year
  Sex: Male

DRUGS (2)
  1. ROACCUTANE [Suspect]
     Indication: ACNE
     Route: 048
  2. ROACCUTANE [Suspect]
     Route: 048
     Dates: end: 20071106

REACTIONS (2)
  - DEPRESSION [None]
  - SUICIDE ATTEMPT [None]
